FAERS Safety Report 12455570 (Version 1)
Quarter: 2016Q2

REPORT INFORMATION
  Report Type: Spontaneous
  Country: None (occurrence: BR)
  Receive Date: 20160610
  Receipt Date: 20160610
  Transmission Date: 20160815
  Serious: Yes (Other)
  Sender: FDA-Public Use
  Company Number: BR-MERCK KGAA-1053648

PATIENT

DRUGS (1)
  1. NOVOTHYROX [Suspect]
     Active Substance: LEVOTHYROXINE SODIUM

REACTIONS (5)
  - Tri-iodothyronine abnormal [None]
  - Blood thyroid stimulating hormone abnormal [None]
  - Arrhythmia [None]
  - Neuralgia [None]
  - Thyroxine abnormal [None]
